FAERS Safety Report 20619381 (Version 1)
Quarter: 2022Q1

REPORT INFORMATION
  Report Type: Spontaneous
  Country: US (occurrence: US)
  Receive Date: 20220322
  Receipt Date: 20220322
  Transmission Date: 20220423
  Serious: Yes (Other)
  Sender: FDA-Public Use
  Company Number: US-EPICPHARMA-US-2022EPCSPO00186

PATIENT
  Age: 73 Year
  Sex: Female

DRUGS (3)
  1. FUROSEMIDE [Suspect]
     Active Substance: FUROSEMIDE
     Indication: Cardiac failure
     Route: 048
     Dates: start: 202108
  2. ENTRESTO [Suspect]
     Active Substance: SACUBITRIL\VALSARTAN
     Indication: Cardiac failure
     Route: 048
     Dates: start: 20210825
  3. ENTRESTO [Suspect]
     Active Substance: SACUBITRIL\VALSARTAN
     Indication: Product used for unknown indication
     Route: 048

REACTIONS (22)
  - Diverticulitis [Recovered/Resolved]
  - Sluggishness [Unknown]
  - Peripheral swelling [Recovered/Resolved]
  - Micturition urgency [Unknown]
  - Gastroenteritis viral [Recovered/Resolved]
  - Urinary tract infection [Recovered/Resolved]
  - Blood pressure increased [Unknown]
  - Fluid retention [Unknown]
  - Weight increased [Unknown]
  - Joint swelling [Unknown]
  - COVID-19 [Recovered/Resolved]
  - Ageusia [Not Recovered/Not Resolved]
  - Fatigue [Not Recovered/Not Resolved]
  - Spinal disorder [Unknown]
  - Back pain [Unknown]
  - Diarrhoea [Recovered/Resolved]
  - Ageusia [None]
  - COVID-19 [None]
  - Fatigue [None]
  - Spinal disorder [None]
  - Peripheral swelling [None]
  - Bradyphrenia [None]

NARRATIVE: CASE EVENT DATE: 20210921
